FAERS Safety Report 6285712-X (Version None)
Quarter: 2009Q3

REPORT INFORMATION
  Report Type: 
  Country: None (occurrence: None)
  Receive Date: 20090724
  Receipt Date: 20090716
  Transmission Date: 20100115
  Serious: Yes (Hospitalization, Other)
  Sender: FDA-Public Use
  Company Number: 2009S1005748

PATIENT
  Age: 56 Year
  Sex: Female

DRUGS (2)
  1. PHOSPHODA FLAVOR NOT SPECIFIED [Suspect]
     Indication: COLONOSCOPY
     Dosage: PO
     Route: 048
     Dates: start: 20070606, end: 20070606
  2. ACE INHIBITOR NOS [Concomitant]

REACTIONS (6)
  - ANGIOEDEMA [None]
  - PALPITATIONS [None]
  - RENAL FAILURE ACUTE [None]
  - RENAL TUBULAR NECROSIS [None]
  - TUBULOINTERSTITIAL NEPHRITIS [None]
  - URTICARIA [None]
